FAERS Safety Report 7893839-1 (Version None)
Quarter: 2011Q4

REPORT INFORMATION
  Report Type: 
  Country: None (occurrence: None)
  Receive Date: 20111104
  Receipt Date: 20111026
  Transmission Date: 20120403
  Serious: Yes (Other)
  Sender: FDA-Public Use
  Company Number: JP-SANOFI-AVENTIS-2011SA071121

PATIENT
  Age: 58 Year
  Sex: Male

DRUGS (7)
  1. DOCETAXEL [Suspect]
     Route: 042
  2. CISPLATIN [Suspect]
     Route: 042
  3. PACLITAXEL [Concomitant]
     Route: 065
  4. DOCETAXEL [Suspect]
     Route: 042
  5. CISPLATIN [Suspect]
     Route: 042
  6. CARBOPLATIN [Concomitant]
  7. ALL OTHER THERAPEUTIC PRODUCTS [Concomitant]
     Route: 065

REACTIONS (1)
  - BRONCHIAL ULCERATION [None]
